FAERS Safety Report 10912743 (Version 2)
Quarter: 2015Q2

REPORT INFORMATION
  Report Type: Report from Study
  Country: US (occurrence: US)
  Receive Date: 20150313
  Receipt Date: 20150528
  Transmission Date: 20150821
  Serious: Yes (Other)
  Sender: FDA-Public Use
  Company Number: US-ABBVIE-15K-163-1355188-00

PATIENT
  Age: 36 Year
  Sex: Female
  Weight: 58.57 kg

DRUGS (1)
  1. HUMIRA [Suspect]
     Active Substance: ADALIMUMAB
     Indication: RHEUMATOID ARTHRITIS
     Route: 058
     Dates: start: 200604

REACTIONS (12)
  - Arthropod bite [Recovered/Resolved]
  - Pyrexia [Recovered/Resolved]
  - Chest pain [Recovering/Resolving]
  - Eye disorder [Recovered/Resolved]
  - Osteoarthritis [Unknown]
  - Scar [Not Recovered/Not Resolved]
  - Osteoporosis [Not Recovered/Not Resolved]
  - Plantar fasciitis [Recovered/Resolved]
  - Rib fracture [Recovering/Resolving]
  - Multiple fractures [Recovered/Resolved]
  - Pulmonary oedema [Recovered/Resolved]
  - Malaise [Recovered/Resolved]

NARRATIVE: CASE EVENT DATE: 201409
